FAERS Safety Report 6756466-5 (Version None)
Quarter: 2010Q2

REPORT INFORMATION
  Report Type: 
  Country: None (occurrence: None)
  Receive Date: 20100604
  Receipt Date: 20100527
  Transmission Date: 20101027
  Serious: Yes (Hospitalization)
  Sender: FDA-Public Use
  Company Number: A0862626A

PATIENT
  Sex: Female

DRUGS (1)
  1. TREXIMET [Suspect]
     Indication: HEADACHE
     Dosage: 1TAB AS DIRECTED
     Route: 048

REACTIONS (1)
  - HEADACHE [None]
